FAERS Safety Report 15338917 (Version 1)
Quarter: 2020Q3

REPORT INFORMATION
  Report Type: Spontaneous
  Country: NL (occurrence: NL)
  Receive Date: 20180831
  Receipt Date: 20180831
  Transmission Date: 20201105
  Serious: Yes (Hospitalization)
  Sender: FDA-Public Use
  Company Number: IND-NL-009507513-1808NLD010234

PATIENT
  Age: 80 Year
  Sex: Female
  Weight: 70 kg

DRUGS (2)
  1. ACETAMINOPHEN. [Concomitant]
     Active Substance: ACETAMINOPHEN
     Dosage: UNK
  2. ETORICOXIB. [Suspect]
     Active Substance: ETORICOXIB
     Indication: PAIN
     Dosage: 1DD 60 (60 MG DAILY)
     Route: 048
     Dates: start: 20180720, end: 20180723

REACTIONS (1)
  - Ecchymosis [Recovering/Resolving]

NARRATIVE: CASE EVENT DATE: 20180721
